FAERS Safety Report 16837926 (Version 2)
Quarter: 2019Q4

REPORT INFORMATION
  Report Type: Spontaneous
  Country: US (occurrence: US)
  Receive Date: 20190923
  Receipt Date: 20191001
  Transmission Date: 20200122
  Serious: No
  Sender: FDA-Public Use
  Company Number: US-HTU-2019US019351

PATIENT
  Sex: Male

DRUGS (1)
  1. VALCHLOR [Suspect]
     Active Substance: MECHLORETHAMINE
     Indication: CUTANEOUS T-CELL LYMPHOMA STAGE I
     Dosage: THIN FILM, SINGLE
     Route: 061

REACTIONS (3)
  - Pruritus [Unknown]
  - Skin discolouration [Unknown]
  - Skin irritation [Unknown]
